FAERS Safety Report 9412529 (Version 1)
Quarter: 2013Q3

REPORT INFORMATION
  Report Type: Spontaneous
  Country: GR (occurrence: GR)
  Receive Date: 20130722
  Receipt Date: 20130722
  Transmission Date: 20140515
  Serious: Yes (Other)
  Sender: FDA-Public Use
  Company Number: GR-ROCHE-1251047

PATIENT
  Age: 70 Year
  Sex: Male

DRUGS (2)
  1. CELLCEPT [Suspect]
     Indication: RETROPERITONEAL FIBROSIS
     Route: 065
  2. CELLCEPT [Suspect]
     Indication: OFF LABEL USE

REACTIONS (2)
  - Prostatic specific antigen increased [Unknown]
  - Prostatic specific antigen decreased [Unknown]
